FAERS Safety Report 6251595-7 (Version None)
Quarter: 2009Q2

REPORT INFORMATION
  Report Type: 
  Country: None (occurrence: None)
  Receive Date: 20090630
  Receipt Date: 20090625
  Transmission Date: 20091009
  Serious: Yes (Hospitalization, Other)
  Sender: FDA-Public Use
  Company Number: DE-ABBOTT-09P-062-0581994-00

PATIENT
  Sex: Female

DRUGS (6)
  1. HUMIRA [Suspect]
     Indication: RHEUMATOID ARTHRITIS
     Dates: start: 20040502, end: 20090128
  2. ANTITRYPTYLIN [Concomitant]
     Indication: DRUG USE FOR UNKNOWN INDICATION
  3. PANTOZOL [Concomitant]
     Indication: DRUG USE FOR UNKNOWN INDICATION
  4. DUSPATAL [Concomitant]
     Indication: DRUG USE FOR UNKNOWN INDICATION
  5. BUSCOPAN [Concomitant]
     Indication: DRUG USE FOR UNKNOWN INDICATION
  6. EFEROX [Concomitant]
     Indication: DRUG USE FOR UNKNOWN INDICATION

REACTIONS (3)
  - NEOPLASM [None]
  - OVARIAN CANCER [None]
  - PROSTHESIS IMPLANTATION [None]
